FAERS Safety Report 5729108-5 (Version None)
Quarter: 2008Q2

REPORT INFORMATION
  Report Type: 
  Country: None (occurrence: None)
  Receive Date: 20080506
  Receipt Date: 20080425
  Transmission Date: 20081010
  Serious: Yes (Other)
  Sender: FDA-Public Use
  Company Number: BR-PFIZER INC-2008037326

PATIENT
  Sex: Female
  Weight: 60 kg

DRUGS (3)
  1. DOXAZOSIN MESYLATE [Suspect]
     Indication: HYPERTONIC BLADDER
     Route: 048
  2. LEXOTAN [Concomitant]
     Route: 048
  3. PANTOPRAZOLE SODIUM [Concomitant]
     Dosage: TEXT:40
     Route: 048

REACTIONS (6)
  - EAR INFECTION [None]
  - NAUSEA [None]
  - SALIVARY HYPERSECRETION [None]
  - SUFFOCATION FEELING [None]
  - VISION BLURRED [None]
  - YELLOW SKIN [None]
